FAERS Safety Report 10181934 (Version 2)
Quarter: 2014Q2

REPORT INFORMATION
  Report Type: Spontaneous
  Country: US (occurrence: US)
  Receive Date: 20140519
  Receipt Date: 20140519
  Transmission Date: 20141212
  Serious: Yes (Other)
  Sender: FDA-Public Use
  Company Number: US-RB-067338-14

PATIENT
  Age: 43 Year
  Sex: Male

DRUGS (3)
  1. SUBOXONE FILM [Suspect]
     Indication: DRUG DEPENDENCE
     Dosage: SUBOXONE FILM
     Route: 060
     Dates: start: 2012, end: 2013
  2. SUBOXONE FILM [Suspect]
     Dosage: SUBOXONE FILM
     Route: 060
     Dates: start: 2013
  3. NEURONTIN [Concomitant]
     Indication: PAIN
     Dosage: DOSING DETAILS UNKNOWN
     Route: 048
     Dates: start: 2001

REACTIONS (5)
  - Drug dependence [Not Recovered/Not Resolved]
  - Drug dependence [Recovered/Resolved]
  - Dysarthria [Recovered/Resolved]
  - Disturbance in attention [Recovered/Resolved]
  - Loss of consciousness [Recovered/Resolved]
